FAERS Safety Report 7535362-X (Version None)
Quarter: 2011Q2

REPORT INFORMATION
  Report Type: 
  Country: None (occurrence: None)
  Receive Date: 20110609
  Receipt Date: 20080214
  Transmission Date: 20111010
  Serious: Yes (Death, Other)
  Sender: FDA-Public Use
  Company Number: PHHY2007CA00847

PATIENT
  Sex: Male

DRUGS (10)
  1. FUROSEMIDE [Concomitant]
     Dosage: 20 MG, 1 TABLET IN THE MORNING
  2. GLYBURIDE [Concomitant]
     Dosage: 5 MG, QD
  3. NOVO-CHLORPROMAZINE [Concomitant]
     Dosage: 25 MG, PRN
  4. CLOZAPINE [Suspect]
     Dosage: 50 MG, QHS
     Route: 048
     Dates: start: 20070110, end: 20071201
  5. TYLENOL-500 [Concomitant]
     Dosage: 500 MG, PRN
     Route: 048
  6. CHLORPROMAZINE HYDROCHLORIDE [Concomitant]
     Dosage: 25 MG, PRN
     Route: 030
  7. APO-ZOPICLONE [Concomitant]
     Dosage: 7.5 MG, QHS
  8. SENNTAB [Concomitant]
     Dosage: 8.6 MG, 1 OR 2 TABLET AT BED TIME
  9. APO-AMILZIDE [Concomitant]
     Dosage: 55 MG, QD
  10. METFORMIN HCL [Concomitant]
     Dosage: 500 MG, BID

REACTIONS (6)
  - BLOOD SODIUM INCREASED [None]
  - BLOOD CREATININE INCREASED [None]
  - DEATH [None]
  - BLOOD POTASSIUM DECREASED [None]
  - BLOOD CHLORIDE INCREASED [None]
  - BLOOD UREA INCREASED [None]
